FAERS Safety Report 13428012 (Version 1)
Quarter: 2017Q2

REPORT INFORMATION
  Report Type: Spontaneous
  Country: US (occurrence: US)
  Receive Date: 20170411
  Receipt Date: 20170411
  Transmission Date: 20170830
  Serious: No
  Sender: FDA-Public Use
  Company Number: US-B.I. PHARMACEUTICALS,INC./RIDGEFIELD-2017-BI-020232

PATIENT
  Age: 51 Year
  Sex: Male

DRUGS (10)
  1. PREDNISONE. [Concomitant]
     Active Substance: PREDNISONE
     Dosage: 4 TABLETS DAILY X 3 DAYS??3 TABLETS DAILY X 3 DAYS??2 TABLETS DAILY X 3 DAYS??1 TABLET DAILY X 3 DAY
     Route: 048
  2. METOPROLOL. [Concomitant]
     Active Substance: METOPROLOL
     Indication: CARDIAC DISORDER
     Dosage: 1 TABLET TWICE DAILY;  FORM STRENGTH: 25MG; FORMULATION: TABLET
     Route: 048
     Dates: start: 20170327
  3. CRESTOR [Concomitant]
     Active Substance: ROSUVASTATIN CALCIUM
     Indication: BLOOD CHOLESTEROL INCREASED
     Dosage: 1 TABLET DAILY;  FORM STRENGTH: 20MG; FORMULATION: TABLET
     Route: 048
     Dates: start: 20170303
  4. ATROVENT [Suspect]
     Active Substance: IPRATROPIUM BROMIDE
     Indication: COUGH
     Dosage: 1 INHALATION DAILY BEFORE BED;  FORM STRENGTH: 17 MCG; FORMULATION: INHALATION AEROSOL? ADMINISTRATI
     Route: 055
     Dates: start: 20170330, end: 20170331
  5. FLONASE [Concomitant]
     Active Substance: FLUTICASONE PROPIONATE
     Indication: COUGH
  6. PREDNISONE. [Concomitant]
     Active Substance: PREDNISONE
     Indication: COUGH
     Dosage: 4 TABLETS DAILY X 3 DAYS??3 TABLETS DAILY X 3 DAYS??2 TABLETS DAILY X 3 DAYS??1 TABLET DAILY X 3 DAY
     Route: 048
     Dates: start: 20170330
  7. PREDNISONE. [Concomitant]
     Active Substance: PREDNISONE
     Dosage: 4 TABLETS DAILY X 3 DAYS??3 TABLETS DAILY X 3 DAYS??2 TABLETS DAILY X 3 DAYS??1 TABLET DAILY X 3 DAY
     Route: 048
  8. PREDNISONE. [Concomitant]
     Active Substance: PREDNISONE
     Indication: NASOPHARYNGITIS
     Dosage: 4 TABLETS DAILY X 3 DAYS??3 TABLETS DAILY X 3 DAYS??2 TABLETS DAILY X 3 DAYS??1 TABLET DAILY X 3 DAY
     Route: 048
  9. ELIQUIS [Concomitant]
     Active Substance: APIXABAN
     Indication: ATRIAL FIBRILLATION
     Dosage: 1 TABLET TWICE A DAY;  FORM STRENGTH: 5MG; FORMULATION: TABLET
     Route: 048
     Dates: start: 20170327
  10. FLONASE [Concomitant]
     Active Substance: FLUTICASONE PROPIONATE
     Indication: NASOPHARYNGITIS
     Dosage: 1 SPRAY INTO EACH NOSTRIL DAILY AT BEDTIME;  FORMULATION: INHALATION SPRAY;
     Route: 055
     Dates: start: 20170330

REACTIONS (7)
  - Off label use [Unknown]
  - Tongue discolouration [Not Recovered/Not Resolved]
  - Tongue discomfort [Not Recovered/Not Resolved]
  - Ageusia [Not Recovered/Not Resolved]
  - Dysphagia [Not Recovered/Not Resolved]
  - Product quality issue [Recovered/Resolved]
  - Tongue erythema [Not Recovered/Not Resolved]

NARRATIVE: CASE EVENT DATE: 20170330
